FAERS Safety Report 17576287 (Version 1)
Quarter: 2020Q1

REPORT INFORMATION
  Report Type: Spontaneous
  Country: US (occurrence: US)
  Receive Date: 20200324
  Receipt Date: 20200324
  Transmission Date: 20200409
  Serious: Yes (Other)
  Sender: FDA-Public Use
  Company Number: US-ASTRAZENECA-2020SE40924

PATIENT
  Sex: Female

DRUGS (21)
  1. DICLOFENAC SODIUM. [Concomitant]
     Active Substance: DICLOFENAC SODIUM
  2. PATADAY [Concomitant]
     Active Substance: OLOPATADINE HYDROCHLORIDE
  3. PREDNISOLONE ACETATE. [Concomitant]
     Active Substance: PREDNISOLONE ACETATE
  4. TRAMADOL HCL [Concomitant]
     Active Substance: TRAMADOL HYDROCHLORIDE
  5. ALEVE [Concomitant]
     Active Substance: NAPROXEN SODIUM
  6. FASLODEX [Suspect]
     Active Substance: FULVESTRANT
     Route: 030
  7. ADVIL COLD AND SINUS [Concomitant]
     Active Substance: IBUPROFEN\PSEUDOEPHEDRINE HYDROCHLORIDE
  8. NEXIUM [Suspect]
     Active Substance: ESOMEPRAZOLE MAGNESIUM
     Route: 048
  9. IBRANCE [Suspect]
     Active Substance: PALBOCICLIB
     Indication: BREAST CANCER
     Route: 048
  10. CALCIUM [Concomitant]
     Active Substance: CALCIUM
  11. VITAMIN B [Concomitant]
     Active Substance: VITAMIN B
  12. VITAMIN C [Concomitant]
     Active Substance: ASCORBIC ACID
  13. I-VITE [Concomitant]
  14. LORATADINE. [Concomitant]
     Active Substance: LORATADINE
  15. FAMOTIDINE. [Concomitant]
     Active Substance: FAMOTIDINE
  16. GERI-KOT [Concomitant]
     Active Substance: SENNOSIDES
  17. MAGNESIUM [Concomitant]
     Active Substance: MAGNESIUM
  18. MULTIVITAMINS [Concomitant]
     Active Substance: VITAMINS
  19. OPTI-FREE REPLENISH [Concomitant]
  20. VITAMIN D3 [Concomitant]
     Active Substance: CHOLECALCIFEROL
  21. ZINC. [Concomitant]
     Active Substance: ZINC

REACTIONS (5)
  - Haemorrhoids [Unknown]
  - Rectal fissure [Unknown]
  - Hip fracture [Unknown]
  - Constipation [Unknown]
  - Metastases to bone [Unknown]
